FAERS Safety Report 17957543 (Version 2)
Quarter: 2020Q3

REPORT INFORMATION
  Report Type: Report from Study
  Country: US (occurrence: US)
  Receive Date: 20200629
  Receipt Date: 20200708
  Transmission Date: 20201103
  Serious: Yes (Other)
  Sender: FDA-Public Use
  Company Number: US-EMD SERONO-9169987

PATIENT
  Age: 50 Year
  Sex: Female

DRUGS (2)
  1. MAVENCLAD [Suspect]
     Active Substance: CLADRIBINE
     Dosage: YEAR ONE MONTH TWO TREATMENT
     Route: 048
     Dates: end: 20200614
  2. MAVENCLAD [Suspect]
     Active Substance: CLADRIBINE
     Indication: MULTIPLE SCLEROSIS
     Dosage: YEAR ONE MONTH ONE TREATMENT
     Route: 048
     Dates: start: 20200505

REACTIONS (9)
  - Blood potassium decreased [Unknown]
  - Vomiting [Not Recovered/Not Resolved]
  - Weight decreased [Unknown]
  - Atrial fibrillation [Unknown]
  - Headache [Not Recovered/Not Resolved]
  - Multiple sclerosis relapse [Unknown]
  - Diarrhoea haemorrhagic [Not Recovered/Not Resolved]
  - Nausea [Unknown]
  - Feeling abnormal [Not Recovered/Not Resolved]

NARRATIVE: CASE EVENT DATE: 202006
